FAERS Safety Report 13929570 (Version 5)
Quarter: 2018Q2

REPORT INFORMATION
  Report Type: Report from Study
  Country: US (occurrence: US)
  Receive Date: 20170901
  Receipt Date: 20180409
  Transmission Date: 20180711
  Serious: No
  Sender: FDA-Public Use
  Company Number: PHEH2017US027999

PATIENT
  Age: 60 Year
  Sex: Male

DRUGS (1)
  1. AFINITOR [Suspect]
     Active Substance: EVEROLIMUS
     Indication: PRODUCT USED FOR UNKNOWN INDICATION
     Route: 065

REACTIONS (9)
  - Vomiting [Unknown]
  - Peripheral swelling [Unknown]
  - Headache [Unknown]
  - Back pain [Unknown]
  - Ill-defined disorder [Unknown]
  - Malaise [Unknown]
  - Diarrhoea [Unknown]
  - Faeces discoloured [Unknown]
  - Dehydration [Unknown]

NARRATIVE: CASE EVENT DATE: 20180322
